FAERS Safety Report 8186426-1 (Version None)
Quarter: 2012Q1

REPORT INFORMATION
  Report Type: 
  Country: None (occurrence: None)
  Receive Date: 20120305
  Receipt Date: 20120305
  Transmission Date: 20120608
  Serious: No
  Sender: FDA-Public Use
  Company Number: None

PATIENT
  Sex: Female

DRUGS (1)
  1. FLUCINOLONE ACETONIDE SCALP .01% [Suspect]
     Indication: PSORIASIS

REACTIONS (4)
  - INFLAMMATION [None]
  - SKIN EXFOLIATION [None]
  - PRODUCT SUBSTITUTION ISSUE [None]
  - SKIN SWELLING [None]
